APPROVED DRUG PRODUCT: GLIPIZIDE
Active Ingredient: GLIPIZIDE
Strength: 5MG
Dosage Form/Route: TABLET;ORAL
Application: A074542 | Product #001
Applicant: CHARTWELL RX SCIENCES LLC
Approved: Jun 20, 1995 | RLD: No | RS: No | Type: DISCN